FAERS Safety Report 11314854 (Version 1)
Quarter: 2015Q3

REPORT INFORMATION
  Report Type: Spontaneous
  Country: US (occurrence: US)
  Receive Date: 20150727
  Receipt Date: 20150727
  Transmission Date: 20151125
  Serious: Yes (Other)
  Sender: FDA-Public Use
  Company Number: US-SHIONOGI, INC.-2015000788

PATIENT
  Age: 65 Year
  Sex: Female
  Weight: 59.86 kg

DRUGS (3)
  1. OSPHENA [Suspect]
     Active Substance: OSPEMIFENE
     Indication: OFF LABEL USE
  2. OSPHENA [Suspect]
     Active Substance: OSPEMIFENE
     Indication: INSOMNIA
     Dosage: UNK
     Route: 048
     Dates: start: 20150710, end: 20150714
  3. OSPHENA [Suspect]
     Active Substance: OSPEMIFENE
     Indication: IRRITABILITY

REACTIONS (4)
  - Dyspnoea [Recovered/Resolved]
  - Visual impairment [Recovering/Resolving]
  - Headache [Not Recovered/Not Resolved]
  - Muscle spasms [Not Recovered/Not Resolved]

NARRATIVE: CASE EVENT DATE: 20150713
